FAERS Safety Report 6197223-0 (Version None)
Quarter: 2009Q2

REPORT INFORMATION
  Report Type: 
  Country: None (occurrence: None)
  Receive Date: 20090521
  Receipt Date: 20070926
  Transmission Date: 20091009
  Serious: Yes (Hospitalization, Other)
  Sender: FDA-Public Use
  Company Number: US-ASTRAZENECA-2006UW24799

PATIENT
  Age: 14729 Day
  Sex: Female
  Weight: 83.9 kg

DRUGS (32)
  1. SEROQUEL [Suspect]
     Indication: BIPOLAR DISORDER
     Dosage: 25-300 MG
     Route: 048
     Dates: start: 19991229
  2. SEROQUEL [Suspect]
     Indication: DEPRESSION
     Dosage: 25-300 MG
     Route: 048
     Dates: start: 19991229
  3. SEROQUEL [Suspect]
     Indication: INSOMNIA
     Dosage: 25-300 MG
     Route: 048
     Dates: start: 19991229
  4. SEROQUEL [Suspect]
     Indication: BONE FRAGMENTATION
     Dosage: 25-300 MG
     Route: 048
     Dates: start: 19991229
  5. GEODON [Concomitant]
     Route: 065
  6. RISPERDAL [Concomitant]
     Route: 065
     Dates: start: 20000101
  7. ZYPREXA [Concomitant]
     Route: 065
     Dates: start: 20000101
  8. CELEXA [Concomitant]
     Indication: DEPRESSION
     Dosage: 20-40 MG
     Route: 048
     Dates: start: 19991229
  9. AVAPRO [Concomitant]
     Route: 065
  10. METFORMIN HCL [Concomitant]
     Dosage: 500-2000 MG
     Route: 048
  11. EFFEXOR XR [Concomitant]
     Indication: DEPRESSION
     Dosage: 75-300 MG
     Route: 048
     Dates: start: 20000918
  12. SINGULAIR [Concomitant]
     Route: 048
  13. AVANDIA [Concomitant]
     Route: 065
  14. TOPAMAX [Concomitant]
     Dosage: 50-150 MG
     Route: 048
  15. GLIPIZIDE [Concomitant]
     Dosage: 5-10 MG
     Route: 048
  16. VERAPAMIL ER [Concomitant]
     Route: 065
  17. HYDROCHLOROTHIAZIDE [Concomitant]
     Route: 048
  18. WELLBUTRIN SR [Concomitant]
     Dosage: 150-1100 MG
     Route: 048
     Dates: start: 20000605
  19. THEOPHYLLINE [Concomitant]
     Indication: ASTHMA
     Route: 048
  20. TRILEPTAL [Concomitant]
     Route: 048
  21. ALBUTEROL [Concomitant]
     Route: 065
  22. FLOVENT [Concomitant]
     Dosage: TWO-THREE PUFFS TWO TIMES DAILY
     Route: 065
  23. NEURONTIN [Concomitant]
     Dosage: 300-1200 MG
     Route: 048
     Dates: start: 20020603
  24. ADVAIR HFA [Concomitant]
     Dosage: 500/50,  TWO  PUFF TWICE DAILY
     Route: 065
  25. PANTOPRAZOLE SODIUM [Concomitant]
     Route: 048
  26. ZOLOFT [Concomitant]
     Indication: DEPRESSION
     Dosage: 50-300 MG
     Route: 048
  27. TRAZODONE HCL [Concomitant]
     Indication: INSOMNIA
     Dosage: 50-150 MG
     Route: 048
  28. PRILOSEC [Concomitant]
     Route: 048
  29. LITHOBID [Concomitant]
     Dosage: 300-900 MG
     Route: 048
     Dates: start: 20001113
  30. LEXAPRO [Concomitant]
     Route: 048
  31. TEGRETOL [Concomitant]
     Route: 048
  32. PROCARDIA XL [Concomitant]
     Dosage: 30-90 MG
     Route: 048
     Dates: start: 20030220

REACTIONS (26)
  - ABDOMINAL PAIN LOWER [None]
  - ARTHRITIS [None]
  - ASTHENIA [None]
  - CELLULITIS [None]
  - CERVICAL DYSPLASIA [None]
  - CHOLELITHIASIS [None]
  - DELUSION [None]
  - DIABETES MELLITUS [None]
  - DYSPHONIA [None]
  - DYSPHORIA [None]
  - FATIGUE [None]
  - GOITRE [None]
  - HYPERTENSION [None]
  - HYPERTHYROIDISM [None]
  - JOINT DISLOCATION [None]
  - MEMORY IMPAIRMENT [None]
  - NAUSEA [None]
  - PSYCHOTIC DISORDER [None]
  - SUBSTANCE ABUSE [None]
  - SUICIDAL IDEATION [None]
  - SUICIDE ATTEMPT [None]
  - TENSION HEADACHE [None]
  - VAGINAL DISCHARGE [None]
  - VAGINAL HAEMORRHAGE [None]
  - VOMITING [None]
  - WEIGHT INCREASED [None]
